FAERS Safety Report 4618645-2 (Version None)
Quarter: 2005Q1

REPORT INFORMATION
  Report Type: 
  Country: None (occurrence: None)
  Receive Date: 20050323
  Receipt Date: 20050309
  Transmission Date: 20050727
  Serious: Yes (Death, Hospitalization)
  Sender: FDA-Public Use
  Company Number: USA-2003-0012615

PATIENT
  Age: 82 Year
  Sex: Female
  Weight: 59 kg

DRUGS (2)
  1. OXYCONTIN [Suspect]
     Indication: CANCER PAIN
     Dosage: 80 MG, SEE TEXT, ORAL
     Route: 048
     Dates: end: 20021021
  2. LORTAB [Concomitant]

REACTIONS (3)
  - COMA [None]
  - CONDITION AGGRAVATED [None]
  - VULVAL CANCER METASTATIC [None]
